FAERS Safety Report 7875704-9 (Version None)
Quarter: 2011Q4

REPORT INFORMATION
  Report Type: 
  Country: None (occurrence: None)
  Receive Date: 20111031
  Receipt Date: 20111024
  Transmission Date: 20120403
  Serious: Yes (Other)
  Sender: FDA-Public Use
  Company Number: US-AMGEN-USASP2011054853

PATIENT
  Age: 69 Year
  Sex: Female

DRUGS (2)
  1. EVISTA [Concomitant]
  2. ARANESP [Suspect]
     Indication: MYELODYSPLASTIC SYNDROME
     Dosage: 300 MUG, Q2WK
     Dates: start: 20081201

REACTIONS (1)
  - OSTEONECROSIS [None]
